FAERS Safety Report 6892811-8 (Version None)
Quarter: 2010Q3

REPORT INFORMATION
  Report Type: 
  Country: None (occurrence: None)
  Receive Date: 20100731
  Receipt Date: 20080918
  Transmission Date: 20110219
  Serious: No
  Sender: FDA-Public Use
  Company Number: US-PFIZER INC-2006039345

PATIENT
  Sex: Female

DRUGS (1)
  1. NORVASC [Suspect]
     Indication: BLOOD PRESSURE ABNORMAL
     Dates: start: 20051001

REACTIONS (3)
  - ANXIETY [None]
  - HEADACHE [None]
  - OEDEMA PERIPHERAL [None]
